FAERS Safety Report 6150817-0 (Version None)
Quarter: 2009Q2

REPORT INFORMATION
  Report Type: 
  Country: None (occurrence: None)
  Receive Date: 20090409
  Receipt Date: 20090408
  Transmission Date: 20091009
  Serious: Yes (Death)
  Sender: FDA-Public Use
  Company Number: GR-ABBOTT-09P-066-0567007-00

PATIENT
  Age: 61 Year
  Sex: Male
  Weight: 76 kg

DRUGS (7)
  1. ZEMPLAR [Suspect]
     Indication: HYPERPARATHYROIDISM SECONDARY
     Route: 042
     Dates: start: 20070704
  2. SUPERAMIN [Concomitant]
     Indication: VITAMIN SUPPLEMENTATION
     Route: 042
     Dates: start: 20070101
  3. SOLUVIT [Concomitant]
     Indication: VITAMIN SUPPLEMENTATION
     Route: 042
     Dates: start: 20070101
  4. NEORECORMON [Concomitant]
     Indication: ANAEMIA
     Route: 042
     Dates: start: 20070101
  5. LOFTYL [Concomitant]
     Indication: ANGIOPATHY
     Route: 042
     Dates: start: 20080101
  6. PLAVIX [Concomitant]
     Indication: ANTICOAGULANT THERAPY
     Route: 048
     Dates: start: 20070101
  7. RENAGEL [Concomitant]
     Indication: HYPERPHOSPHATAEMIA
     Dosage: 800 TAB
     Route: 048
     Dates: start: 20070101

REACTIONS (1)
  - ACUTE MYOCARDIAL INFARCTION [None]
